FAERS Safety Report 19256868 (Version 4)
Quarter: 2021Q4

REPORT INFORMATION
  Report Type: Spontaneous
  Country: US (occurrence: US)
  Receive Date: 20210513
  Receipt Date: 20211129
  Transmission Date: 20220303
  Serious: Yes (Life-Threatening, Hospitalization)
  Sender: FDA-Public Use
  Company Number: US-TEVA-2021-US-1910087

PATIENT
  Age: 14 Year
  Sex: Female

DRUGS (4)
  1. LORAZEPAM [Suspect]
     Active Substance: LORAZEPAM
     Indication: Anticholinergic syndrome
     Dosage: BEFORE ADMISSION
     Route: 065
  2. LORAZEPAM [Suspect]
     Active Substance: LORAZEPAM
     Dosage: IN THE EMERGENCY DEPARTMENT
     Route: 065
  3. DIPHENHYDRAMINE [Suspect]
     Active Substance: DIPHENHYDRAMINE
     Indication: Product used for unknown indication
     Dosage: PATIENT INGESTED 100 TABLETS OF DIPHENHYDRAMINE
     Route: 048
  4. ACETAMINOPHEN [Suspect]
     Active Substance: ACETAMINOPHEN
     Indication: Product used for unknown indication
     Route: 048

REACTIONS (6)
  - Anticholinergic syndrome [Recovered/Resolved]
  - Vomiting [Unknown]
  - Urinary incontinence [Unknown]
  - Overdose [Unknown]
  - Intentional overdose [Unknown]
  - Drug ineffective [Unknown]
